FAERS Safety Report 6029863-3 (Version None)
Quarter: 2008Q4

REPORT INFORMATION
  Report Type: 
  Country: None (occurrence: None)
  Receive Date: 20081230
  Receipt Date: 20081230
  Transmission Date: 20090506
  Serious: Yes (Death)
  Sender: FDA-Public Use
  Company Number: None

PATIENT
  Age: 69 Year
  Sex: Male

DRUGS (9)
  1. ETOPOSIDE [Suspect]
     Indication: NON-HODGKIN'S LYMPHOMA STAGE I
  2. MITOXANTRONE HYDROCHLORIDE [Suspect]
     Indication: NON-HODGKIN'S LYMPHOMA STAGE I
  3. VINCRISTINE [Suspect]
     Indication: NON-HODGKIN'S LYMPHOMA STAGE I
  4. RITUXIMAB [Suspect]
     Indication: NON-HODGKIN'S LYMPHOMA STAGE I
  5. CYCLOPHOSPHAMIDE [Suspect]
     Indication: NON-HODGKIN'S LYMPHOMA STAGE I
  6. PREDNISOLONE [Suspect]
     Indication: NON-HODGKIN'S LYMPHOMA STAGE I
  7. WARFARIN SODIUM [Concomitant]
  8. CANDESARTAN [Concomitant]
  9. OMEPRAZOLE [Concomitant]

REACTIONS (15)
  - ACALCULIA [None]
  - ANAEMIA [None]
  - BRAIN OEDEMA [None]
  - CONFUSIONAL STATE [None]
  - DISORIENTATION [None]
  - DYSPHASIA [None]
  - HEPATIC FUNCTION ABNORMAL [None]
  - HYPERAMMONAEMIC ENCEPHALOPATHY [None]
  - INCOHERENT [None]
  - LETHARGY [None]
  - MALAISE [None]
  - METABOLIC ACIDOSIS [None]
  - MOBILITY DECREASED [None]
  - PARTIAL SEIZURES [None]
  - RESPIRATORY ALKALOSIS [None]
